FAERS Safety Report 9280686 (Version 1)
Quarter: 2013Q2

REPORT INFORMATION
  Report Type: Spontaneous
  Country: US (occurrence: US)
  Receive Date: 20130509
  Receipt Date: 20130509
  Transmission Date: 20140414
  Serious: Yes (Other)
  Sender: FDA-Public Use
  Company Number: US-PFIZER INC-2013141515

PATIENT
  Age: 38 Year
  Sex: Female
  Weight: 86.17 kg

DRUGS (5)
  1. XANAX [Suspect]
     Indication: ANXIETY
     Dosage: 0.5 MG, 3X/DAY
     Route: 048
     Dates: start: 2011, end: 201304
  2. NEURONTIN [Concomitant]
     Dosage: 400 MG, UNK
  3. AMBIEN [Concomitant]
     Dosage: 10 MG, UNK
  4. CYMBALTA [Concomitant]
     Dosage: 60 MG, UNK
  5. CLONAZEPAM [Concomitant]
     Dosage: 0.5 MG, UNK

REACTIONS (4)
  - Multiple sclerosis [Not Recovered/Not Resolved]
  - Urinary tract infection [Unknown]
  - Anxiety [Unknown]
  - Dysuria [Unknown]
